FAERS Safety Report 24913260 (Version 1)
Quarter: 2025Q1

REPORT INFORMATION
  Report Type: Spontaneous
  Country: US (occurrence: US)
  Receive Date: 20250201
  Receipt Date: 20250201
  Transmission Date: 20250409
  Serious: Yes (Other)
  Sender: ROCHE
  Company Number: US-CHEPLA-2025001127

PATIENT
  Sex: Female

DRUGS (9)
  1. VALGANCICLOVIR [Suspect]
     Active Substance: VALGANCICLOVIR
     Indication: Antiviral prophylaxis
     Dosage: ONGOING
     Route: 065
     Dates: start: 2018
  2. MYFORTIC [Suspect]
     Active Substance: MYCOPHENOLATE SODIUM
     Indication: Liver transplant
     Route: 048
     Dates: start: 2022, end: 20240328
  3. MAGNESIUM [Concomitant]
     Active Substance: MAGNESIUM
     Route: 065
  4. CLOTRIMAZOLE [Concomitant]
     Active Substance: CLOTRIMAZOLE
     Indication: Candida infection
     Dosage: ONGOING; BID
     Route: 065
     Dates: start: 2023
  5. DAPSONE [Concomitant]
     Active Substance: DAPSONE
     Indication: Pneumocystis jirovecii pneumonia
     Dosage: ONGOING
     Route: 065
     Dates: start: 2023
  6. PANTOPRAZOLE [Concomitant]
     Active Substance: PANTOPRAZOLE
     Indication: Gastric ulcer
     Dosage: ONGOING
     Route: 065
     Dates: start: 2018
  7. PREDNISONE [Concomitant]
     Active Substance: PREDNISONE
     Indication: Transplant rejection
     Dosage: ONGOING
     Route: 065
     Dates: start: 2018
  8. SIROLIMUS [Concomitant]
     Active Substance: SIROLIMUS
     Indication: Transplant rejection
     Dosage: ONGOING
     Route: 065
     Dates: start: 2020
  9. TACROLIMUS [Concomitant]
     Active Substance: TACROLIMUS
     Indication: Prophylaxis against transplant rejection
     Route: 065
     Dates: start: 2018

REACTIONS (3)
  - Thrombocytopenia [Unknown]
  - Cholestasis [Unknown]
  - Maternal exposure before pregnancy [Unknown]
